FAERS Safety Report 5528785-1 (Version None)
Quarter: 2007Q4

REPORT INFORMATION
  Report Type: 
  Country: None (occurrence: None)
  Receive Date: 20071129
  Receipt Date: 20071119
  Transmission Date: 20080405
  Serious: Yes (Hospitalization)
  Sender: FDA-Public Use
  Company Number: GB-SOLVAY-00207035059

PATIENT
  Age: 66 Year
  Sex: Female

DRUGS (1)
  1. COVERSYL [Suspect]
     Indication: ILL-DEFINED DISORDER
     Dosage: DAILY DOSE:  UNKNOWN
     Route: 048

REACTIONS (5)
  - ACIDOSIS [None]
  - ANAPHYLACTOID REACTION [None]
  - CARDIAC ARREST [None]
  - RENAL FAILURE [None]
  - SEPTIC SHOCK [None]
